FAERS Safety Report 11772185 (Version 3)
Quarter: 2017Q4

REPORT INFORMATION
  Report Type: Spontaneous
  Country: US (occurrence: US)
  Receive Date: 20151124
  Receipt Date: 20171113
  Transmission Date: 20180320
  Serious: Yes (Other)
  Sender: FDA-Public Use
  Company Number: US-PFIZER INC-2015390794

PATIENT
  Age: 39 Year
  Sex: Male
  Weight: 101 kg

DRUGS (3)
  1. XYNTHA [Suspect]
     Active Substance: ANTIHEMOPHILIC FACTOR, HUMAN RECOMBINANT RESIDUES 743-1636 DELETED
     Indication: FACTOR VIII DEFICIENCY
     Dosage: 5000 IU, 3X/DAY
     Route: 042
     Dates: start: 200608
  2. ACETAMINOPHEN. [Concomitant]
     Active Substance: ACETAMINOPHEN
     Indication: ARTHROPATHY
     Dosage: 500 MG, 1X/DAY
     Route: 048
     Dates: start: 201710
  3. XYNTHA [Suspect]
     Active Substance: ANTIHEMOPHILIC FACTOR, HUMAN RECOMBINANT RESIDUES 743-1636 DELETED
     Indication: FACTOR VIII DEFICIENCY

REACTIONS (2)
  - Haemorrhage [Recovered/Resolved]
  - Joint lock [Recovered/Resolved]

NARRATIVE: CASE EVENT DATE: 20171107
